FAERS Safety Report 6636847-0 (Version None)
Quarter: 2010Q1

REPORT INFORMATION
  Report Type: 
  Country: None (occurrence: None)
  Receive Date: 20100316
  Receipt Date: 20100302
  Transmission Date: 20100710
  Serious: Yes (Other)
  Sender: FDA-Public Use
  Company Number: FR-ELI_LILLY_AND_COMPANY-FR200907001670

PATIENT
  Sex: Male

DRUGS (2)
  1. CIALIS [Suspect]
     Dosage: UNK, UNKNOWN
     Route: 065
     Dates: start: 20080101, end: 20080101
  2. CIALIS [Suspect]
     Dosage: UNK, UNKNOWN
     Dates: start: 20091201

REACTIONS (2)
  - THROMBOPHLEBITIS SUPERFICIAL [None]
  - VENOUS THROMBOSIS LIMB [None]
